FAERS Safety Report 6030627-5 (Version None)
Quarter: 2009Q1

REPORT INFORMATION
  Report Type: 
  Country: None (occurrence: None)
  Receive Date: 20090106
  Receipt Date: 20090106
  Transmission Date: 20090719
  Serious: Yes (Hospitalization)
  Sender: FDA-Public Use
  Company Number: None

PATIENT
  Age: 60 Year
  Sex: Female
  Weight: 67.9 kg

DRUGS (1)
  1. MOXIFLOXACIN HCL [Suspect]
     Indication: PNEUMONIA
     Dosage: 400MG DAILY IV ONE DOSE
     Route: 042
     Dates: start: 20081008, end: 20081008

REACTIONS (3)
  - DYSPNOEA [None]
  - HYPOXIA [None]
  - RASH [None]
